FAERS Safety Report 5452041-3 (Version None)
Quarter: 2007Q3

REPORT INFORMATION
  Report Type: 
  Country: None (occurrence: None)
  Receive Date: 20070912
  Receipt Date: 20070716
  Transmission Date: 20080115
  Serious: Yes (Death, Hospitalization)
  Sender: FDA-Public Use
  Company Number: 2007US002132

PATIENT
  Age: 74 Year
  Sex: Male

DRUGS (1)
  1. AMBISOME [Suspect]
     Indication: BRONCHOPULMONARY ASPERGILLOSIS

REACTIONS (2)
  - HAEMOPTYSIS [None]
  - RESPIRATORY FAILURE [None]
